FAERS Safety Report 9397034 (Version 1)
Quarter: 2013Q3

REPORT INFORMATION
  Report Type: Spontaneous
  Country: CA (occurrence: CA)
  Receive Date: 20130712
  Receipt Date: 20130712
  Transmission Date: 20140515
  Serious: Yes (Other)
  Sender: FDA-Public Use
  Company Number: CA-ROCHE-1247395

PATIENT
  Age: 81 Year
  Sex: Female
  Weight: 65 kg

DRUGS (6)
  1. CEFTRIAXONE SODIUM [Suspect]
     Indication: PRODUCT USED FOR UNKNOWN INDICATION
     Dosage: POWDER FOR SOLUTION INTRAMUSCULAR
     Route: 042
  2. HEPARIN SODIUM [Concomitant]
     Dosage: SOLUTION INTRAVENOUS
     Route: 058
  3. METOCLOPRAMIDE [Concomitant]
     Route: 042
  4. OCTREOTIDE [Concomitant]
     Dosage: SOLUTION INTRAVENOUS
     Route: 058
  5. PANTOPRAZOLE [Concomitant]
     Route: 042
  6. TOTAL PARENTERAL NUTRITION [Concomitant]
     Route: 065

REACTIONS (1)
  - Platelet count decreased [Recovered/Resolved]
